FAERS Safety Report 14127768 (Version 2)
Quarter: 2017Q4

REPORT INFORMATION
  Report Type: Spontaneous
  Country: FR (occurrence: FR)
  Receive Date: 20171026
  Receipt Date: 20171110
  Transmission Date: 20180321
  Serious: Yes (Hospitalization, Other)
  Sender: FDA-Public Use
  Company Number: FR-CIPLA LTD.-2017FR18523

PATIENT

DRUGS (6)
  1. OXALIPLATIN. [Suspect]
     Active Substance: OXALIPLATIN
     Indication: OESOPHAGEAL ADENOCARCINOMA
     Dosage: 190 MG, 2 CYCLICAL 85 MG/M2, I.E. 190 MG TOTAL DOSE IN 500 ML OF 5% GLUCOSE SOLUTION
     Route: 042
  2. FLUOROURACIL. [Suspect]
     Active Substance: FLUOROURACIL
     Indication: OESOPHAGEAL ADENOCARCINOMA
     Dosage: 920 MG, 3 CYCLICAL, 400 MG/M2, I.E. 920 MG TOTAL DOSE IN BOLUS IN 100 ML OF 5% GLUCOSE SOLUTION
     Route: 040
  3. SODIUM CHLORIDE. [Concomitant]
     Active Substance: SODIUM CHLORIDE
     Dosage: 140 ML, UNK
     Route: 042
  4. FLUOROURACIL. [Suspect]
     Active Substance: FLUOROURACIL
     Dosage: 5500 MG, 3 CYCLICAL 1,200 MG/M2, I.E. 5,500 MG TOTAL DOSE IN 140 ML OF NACL
     Route: 042
  5. GLUCOSE [Concomitant]
     Active Substance: DEXTROSE
     Dosage: 500 ML, UNK
     Route: 042
  6. GLUCOSE [Concomitant]
     Active Substance: DEXTROSE
     Dosage: 100 ML, UNK
     Route: 040

REACTIONS (7)
  - Chest discomfort [Unknown]
  - Infusion site extravasation [Unknown]
  - Dysphonia [Recovering/Resolving]
  - Toxicity to various agents [Unknown]
  - Cardiotoxicity [Unknown]
  - Vocal cord paralysis [Unknown]
  - Bronchospasm [Unknown]
